FAERS Safety Report 8390489 (Version 2)
Quarter: 2013Q2

REPORT INFORMATION
  Report Type: Spontaneous
  Country: US (occurrence: US)
  Receive Date: 20120205
  Receipt Date: 20130405
  Transmission Date: 20140414
  Serious: Yes (Other)
  Sender: FDA-Public Use
  Company Number: PHHY2012US008533

PATIENT
  Sex: Female

DRUGS (11)
  1. METOPROLOL [Suspect]
     Dosage: 25 MG, BID
  2. ISOPROTERENOL [Suspect]
     Indication: VENTRICULAR TACHYCARDIA
     Dosage: (TITRATED FROM 0.25 TO 1.0 MCG/MIN)
  3. ISOPROTERENOL [Suspect]
     Dosage: UNK
  4. MAGNESIUM [Suspect]
     Indication: VENTRICULAR TACHYCARDIA
     Dosage: (CONTINUOUS DRIP UP TO 2 G/HOUR)
  5. CILOSTAZOL [Suspect]
     Indication: VENTRICULAR TACHYCARDIA
     Dosage: 100 MG, BID
  6. AMIODARONE [Suspect]
     Indication: VENTRICULAR TACHYCARDIA
     Dosage: UNK
  7. AMIODARONE [Suspect]
     Dosage: 400 MG, QD
  8. AMIODARONE [Suspect]
     Dosage: (3 MG/MIN FOR 60 MINUTES)
  9. AMIODARONE [Suspect]
     Dosage: (1 MG/MIN DRIP)
  10. QUINAGLUTE [Suspect]
     Dosage: 324 MG, TID
  11. ESMOLOL [Suspect]
     Dosage: 50 UG/KG/MIN
     Route: 041

REACTIONS (11)
  - Torsade de pointes [Unknown]
  - Ventricular extrasystoles [Unknown]
  - Extrasystoles [Unknown]
  - Ventricular tachycardia [Unknown]
  - Ventricular fibrillation [Unknown]
  - Device malfunction [Unknown]
  - Exposure during pregnancy [Unknown]
  - Pregnancy [None]
  - Abortion spontaneous [None]
  - Caesarean section [None]
  - Premature delivery [None]
